FAERS Safety Report 6206926-0 (Version None)
Quarter: 2009Q2

REPORT INFORMATION
  Report Type: 
  Country: None (occurrence: None)
  Receive Date: 20090528
  Receipt Date: 20090521
  Transmission Date: 20091009
  Serious: Yes (Death, Hospitalization)
  Sender: FDA-Public Use
  Company Number: A0785571A

PATIENT
  Age: 54 Year
  Sex: Female

DRUGS (5)
  1. TYKERB [Suspect]
     Indication: BREAST CANCER
     Dosage: 1000MG PER DAY
     Route: 048
  2. LORAZEPAM [Concomitant]
  3. FENTANYL-100 [Concomitant]
  4. GABAPENTIN [Concomitant]
  5. ZOLPIDEM [Concomitant]

REACTIONS (2)
  - ADVERSE EVENT [None]
  - DEATH [None]
